FAERS Safety Report 8000112-X (Version None)
Quarter: 2011Q4

REPORT INFORMATION
  Report Type: 
  Country: None (occurrence: None)
  Receive Date: 20111222
  Receipt Date: 20111209
  Transmission Date: 20120403
  Serious: Yes (Hospitalization)
  Sender: FDA-Public Use
  Company Number: US-ELI_LILLY_AND_COMPANY-US201110004665

PATIENT
  Sex: Female

DRUGS (43)
  1. NEXIUM [Concomitant]
  2. REQUIP [Concomitant]
     Indication: RESTLESS LEGS SYNDROME
  3. ASPIRIN [Concomitant]
     Dosage: 81 MG, QD
  4. ADVAIR DISKUS 100/50 [Concomitant]
  5. NIFEREX-150 FORTE [Concomitant]
  6. SYNTHROID [Concomitant]
  7. ISOPTO HOMATROPINE [Concomitant]
  8. LYRICA [Concomitant]
     Dosage: 100 MG, TID
  9. HYDROCODONE [Concomitant]
  10. VITAMIN D [Concomitant]
  11. FENTANYL [Concomitant]
     Dosage: 25 MG, UNK
  12. FLEXERIL [Concomitant]
     Dosage: 5 MG, BID
  13. FORTEO [Suspect]
     Indication: OSTEOPOROSIS
     Dosage: 20 UG, QD
     Dates: start: 20110101, end: 20110926
  14. VALTREX [Concomitant]
  15. METHOTREXATE [Concomitant]
     Dosage: 5 MG, 2/W
  16. MUCINEX [Concomitant]
  17. WELCHOL [Concomitant]
  18. DUONEB [Concomitant]
  19. FORTEO [Suspect]
     Dosage: 20 UG, QD
  20. MULTI-VITAMIN [Concomitant]
  21. VITAMIN D [Concomitant]
  22. NORVASC [Concomitant]
  23. NORCO [Concomitant]
  24. TOPROL-XL [Concomitant]
  25. PRILOSEC [Concomitant]
  26. OS-CAL 500 + D [Concomitant]
  27. ACETAMINOPHEN [Concomitant]
  28. FORTEO [Suspect]
     Dosage: 20 UG, QD
     Dates: start: 20111017, end: 20111104
  29. CYMBALTA [Concomitant]
     Dosage: 60 MG, BID
  30. LEVOTHYROXINE SODIUM [Concomitant]
  31. MULTIPLE VITAMIN [Concomitant]
  32. OXYBUTYNIN [Concomitant]
  33. SOMA [Concomitant]
  34. PREDNISONE TAB [Concomitant]
     Dosage: 5 MG, BID
  35. FORTEO [Suspect]
     Dosage: 20 UG, QD
  36. CALCIUM [Concomitant]
  37. ATROVENT [Concomitant]
  38. ANALGESICS [Concomitant]
     Indication: PAIN
     Dosage: UNK, UNKNOWN
  39. ANALGESICS [Concomitant]
     Dosage: UNK, QD
  40. CLARITIN [Concomitant]
  41. DITROPAN [Concomitant]
  42. LOSARTAN POTASSIUM [Concomitant]
     Indication: BLOOD PRESSURE
  43. BENZONATATE [Concomitant]

REACTIONS (17)
  - COUGH [None]
  - ASTHENIA [None]
  - MALAISE [None]
  - DEHYDRATION [None]
  - OEDEMA PERIPHERAL [None]
  - HIATUS HERNIA [None]
  - DIARRHOEA [None]
  - DYSPNOEA [None]
  - HYPOPHAGIA [None]
  - MENTAL STATUS CHANGES [None]
  - DRY MOUTH [None]
  - AGGRESSION [None]
  - UNRESPONSIVE TO STIMULI [None]
  - BACK PAIN [None]
  - HYPERTENSION [None]
  - CONSTIPATION [None]
  - HAEMORRHAGE [None]
